FAERS Safety Report 14739532 (Version 2)
Quarter: 2018Q2

REPORT INFORMATION
  Report Type: Spontaneous
  Country: US (occurrence: US)
  Receive Date: 20180410
  Receipt Date: 20180601
  Transmission Date: 20180711
  Serious: No
  Sender: FDA-Public Use
  Company Number: US-ASTRAZENECA-2018SE32228

PATIENT
  Age: 32200 Day
  Sex: Female
  Weight: 79.4 kg

DRUGS (2)
  1. SYMBICORT [Suspect]
     Active Substance: BUDESONIDE\FORMOTEROL FUMARATE DIHYDRATE
     Indication: CHRONIC OBSTRUCTIVE PULMONARY DISEASE
     Dosage: 160/4.5 MCG, ONE INHALATION, TWO TIMES A DAY
     Route: 055
     Dates: start: 2017
  2. INCRUSE ELLIPTA [Concomitant]
     Active Substance: UMECLIDINIUM BROMIDE
     Indication: CHRONIC OBSTRUCTIVE PULMONARY DISEASE
     Route: 055
     Dates: start: 2016

REACTIONS (7)
  - Device malfunction [Unknown]
  - Off label use [Unknown]
  - Product use issue [Unknown]
  - Dyspnoea [Unknown]
  - Drug dose omission [Unknown]
  - Wheezing [Unknown]
  - Intentional device misuse [Unknown]

NARRATIVE: CASE EVENT DATE: 20180311
